FAERS Safety Report 7261204-6 (Version None)
Quarter: 2011Q1

REPORT INFORMATION
  Report Type: 
  Country: None (occurrence: None)
  Receive Date: 20110130
  Receipt Date: 20100928
  Transmission Date: 20110831
  Serious: No
  Sender: FDA-Public Use
  Company Number: US-ABBOTT-10P-163-0674318-00

PATIENT
  Age: 18 Year
  Sex: Female

DRUGS (4)
  1. HUMIRA [Suspect]
     Indication: JUVENILE ARTHRITIS
  2. ZOLOFT [Concomitant]
     Indication: DEPRESSION
  3. PRILOSEC [Concomitant]
     Indication: ABDOMINAL DISCOMFORT
  4. MTX [Concomitant]
     Indication: RHEUMATOID ARTHRITIS
     Dosage: 7 PILLS WEEKLY

REACTIONS (2)
  - MENORRHAGIA [None]
  - HAEMATOCHEZIA [None]
